FAERS Safety Report 5330166-0 (Version None)
Quarter: 2007Q2

REPORT INFORMATION
  Report Type: 
  Country: None (occurrence: None)
  Receive Date: 20070515
  Receipt Date: 20070507
  Transmission Date: 20071010
  Serious: Yes (Hospitalization)
  Sender: FDA-Public Use
  Company Number: 2007-158162-NL

PATIENT
  Age: 29 Year
  Sex: Female
  Weight: 52.2 kg

DRUGS (5)
  1. IMPLANON [Suspect]
     Indication: CONTRACEPTION
     Dosage: NI SUBDERMAL
     Route: 059
     Dates: start: 20070226, end: 20070507
  2. FLEXERIL [Concomitant]
  3. SYNTHROID [Concomitant]
  4. AMBIEN [Concomitant]
  5. CELEBREX [Concomitant]

REACTIONS (4)
  - ANTINUCLEAR ANTIBODY POSITIVE [None]
  - PAIN IN EXTREMITY [None]
  - PULMONARY EMBOLISM [None]
  - SYSTEMIC LUPUS ERYTHEMATOSUS [None]
